FAERS Safety Report 16068284 (Version 1)
Quarter: 2019Q1

REPORT INFORMATION
  Report Type: Other
  Country: BR (occurrence: BR)
  Receive Date: 20190313
  Receipt Date: 20190313
  Transmission Date: 20190418
  Serious: Yes (Hospitalization)
  Sender: FDA-Public Use
  Company Number: BR-B. BRAUN MEDICAL INC.-2063943

PATIENT
  Age: 67 Year
  Sex: Male

DRUGS (7)
  1. CEFEPIME HYDROCHLORIDE AND DEXTROSE [Suspect]
     Active Substance: CEFEPIME HYDROCHLORIDE
  2. FUROSEMIDE. [Concomitant]
     Active Substance: FUROSEMIDE
  3. CAPTOPRIL. [Concomitant]
     Active Substance: CAPTOPRIL
  4. CIPROFLOXACIN. [Concomitant]
     Active Substance: CIPROFLOXACIN
  5. CARVEDILOL. [Concomitant]
     Active Substance: CARVEDILOL
  6. CLONAZEPAM. [Concomitant]
     Active Substance: CLONAZEPAM
  7. ACETYLSALICYLIC ACID [Concomitant]
     Active Substance: ASPIRIN

REACTIONS (1)
  - Acute generalised exanthematous pustulosis [None]
